FAERS Safety Report 9680346 (Version 1)
Quarter: 2013Q4

REPORT INFORMATION
  Report Type: Spontaneous
  Country: CN (occurrence: CN)
  Receive Date: 20131111
  Receipt Date: 20131111
  Transmission Date: 20140711
  Serious: Yes (Other)
  Sender: FDA-Public Use
  Company Number: CN-JNJFOC-20131101354

PATIENT
  Age: 17 Year
  Sex: Female

DRUGS (2)
  1. REMICADE [Suspect]
     Indication: RHEUMATIC DISORDER
     Dosage: 8TH ADMINISTRATION
     Route: 042
     Dates: start: 20130815
  2. REMICADE [Suspect]
     Indication: RHEUMATIC DISORDER
     Route: 042

REACTIONS (6)
  - Dyspnoea [Recovered/Resolved]
  - Hyperpyrexia [Recovered/Resolved]
  - Infusion related reaction [Recovered/Resolved]
  - Chills [Recovered/Resolved]
  - Heart rate increased [Recovered/Resolved]
  - Feeling cold [Recovered/Resolved]
